FAERS Safety Report 8641672 (Version 2)
Quarter: 2014Q1

REPORT INFORMATION
  Report Type: Spontaneous
  Country: US (occurrence: None)
  Receive Date: 20120323
  Receipt Date: 20130305
  Transmission Date: 20141002
  Serious: Yes (Hospitalization, Other)
  Sender: FDA-Public Use
  Company Number: 163-21880-11083011

PATIENT
  Age: 83 Year
  Sex: Female
  Weight: 53.62 kg

DRUGS (24)
  1. REVLIMID [Suspect]
     Indication: PLASMA CELL MYELOMA
     Dosage: 10 MG, DAILY X 21 DAYS, PO
     Route: 048
     Dates: start: 20110604, end: 20110808
  2. LUNESTA [Concomitant]
  3. SYNTHROID [Concomitant]
  4. ACYCLOVIR [Concomitant]
  5. MIRTAZAPINE (MIRTAZAPINE) [Concomitant]
  6. PLAVIX [Concomitant]
  7. ASA (ACETYLSALICYLIC ACID) [Concomitant]
  8. STOOL SOFTENER (DOCUSATE SODIUM) [Concomitant]
  9. CALCIUM CITRATE (CALCIUM CITRATE) [Concomitant]
  10. OXYCODONE (OXYCODONE) [Concomitant]
  11. OXYCONTIN [Concomitant]
  12. FLUDROCORTISONE ACETATE [Concomitant]
  13. DEXAMETHASONE (DEXAMETHASONE) [Concomitant]
  14. FLUID (IV SOLUTIONS) [Concomitant]
  15. LASIX [Concomitant]
  16. BENZONATATE [Concomitant]
  17. MULTIVITAMINS [Concomitant]
  18. VITAMIN D3 AND K /BERBERINE HCL/HOPS (ALL OTHER THERAPEUTIC PRODUCTS) [Concomitant]
  19. CALCIUM CARBONATE [Concomitant]
  20. MELPHALAN [Concomitant]
  21. PREDNISONE [Concomitant]
  22. HYDROCODONE-ACETAMINOPHEN (VICODIN) [Concomitant]
  23. SENNA S (COLOXYL WITH SENNA) [Concomitant]
  24. THERATRUM COMPLETE 50 PLUS (ALL OTHER THERAPEUTIC PRODUCTS) [Concomitant]

REACTIONS (4)
  - Dehydration [None]
  - Pancytopenia [None]
  - Febrile neutropenia [None]
  - Failure to thrive [None]
